FAERS Safety Report 18516424 (Version 1)
Quarter: 2020Q4

REPORT INFORMATION
  Report Type: Spontaneous
  Country: US (occurrence: US)
  Receive Date: 20201118
  Receipt Date: 20201118
  Transmission Date: 20210114
  Serious: Yes (Hospitalization)
  Sender: FDA-Public Use
  Company Number: None

PATIENT
  Age: 48 Year
  Sex: Female
  Weight: 52.65 kg

DRUGS (1)
  1. RECLAST [Suspect]
     Active Substance: ZOLEDRONIC ACID
     Indication: OSTEOPOROSIS
     Dosage: ?          QUANTITY:1 NOT SURE;OTHER FREQUENCY:ONCE A YEAR;?
     Route: 042
     Dates: start: 20201113

REACTIONS (7)
  - Asthenia [None]
  - Vomiting [None]
  - Dizziness [None]
  - Pyrexia [None]
  - Pain [None]
  - Dysstasia [None]
  - Gait inability [None]

NARRATIVE: CASE EVENT DATE: 20201113
